FAERS Safety Report 11529514 (Version 3)
Quarter: 2016Q3

REPORT INFORMATION
  Report Type: Spontaneous
  Country: US (occurrence: US)
  Receive Date: 20150921
  Receipt Date: 20160715
  Transmission Date: 20161109
  Serious: Yes (Hospitalization)
  Sender: FDA-Public Use
  Company Number: US-SA-2015SA142765

PATIENT
  Age: 66 Year
  Sex: Female
  Weight: 131 kg

DRUGS (1)
  1. AUBAGIO [Suspect]
     Active Substance: TERIFLUNOMIDE
     Indication: MULTIPLE SCLEROSIS
     Dosage: DOSE : 14;UNITS : UNSPECIFIED
     Route: 065
     Dates: start: 201508

REACTIONS (7)
  - Vomiting [Recovered/Resolved]
  - Condition aggravated [Recovering/Resolving]
  - Facial bones fracture [Recovering/Resolving]
  - Fall [Unknown]
  - Balance disorder [Recovering/Resolving]
  - Diarrhoea [Recovered/Resolved]
  - White blood cell count decreased [Not Recovered/Not Resolved]

NARRATIVE: CASE EVENT DATE: 201508
